FAERS Safety Report 16149941 (Version 4)
Quarter: 2019Q2

REPORT INFORMATION
  Report Type: Spontaneous
  Country: US (occurrence: US)
  Receive Date: 20190402
  Receipt Date: 20190619
  Transmission Date: 20190711
  Serious: Yes (Disabling)
  Sender: FDA-Public Use
  Company Number: US-ELI_LILLY_AND_COMPANY-US201903016139

PATIENT
  Sex: Female
  Weight: 67.5 kg

DRUGS (1)
  1. TALTZ [Suspect]
     Active Substance: IXEKIZUMAB
     Indication: PSORIASIS
     Dosage: 160MG, EVERY TWO WEEKS AND THEN 80MG
     Route: 065
     Dates: start: 20180625, end: 20180723

REACTIONS (8)
  - Injection site reaction [Unknown]
  - Injection site swelling [Unknown]
  - Pain [Unknown]
  - Colitis microscopic [Recovering/Resolving]
  - Injection site rash [Unknown]
  - Injection site pain [Unknown]
  - Injection site erythema [Recovered/Resolved]
  - Injection site bruising [Unknown]
